FAERS Safety Report 9392453 (Version 2)
Quarter: 2013Q4

REPORT INFORMATION
  Report Type: Spontaneous
  Country: US (occurrence: US)
  Receive Date: 20130710
  Receipt Date: 20131101
  Transmission Date: 20140711
  Serious: Yes (Hospitalization)
  Sender: FDA-Public Use
  Company Number: US-BAYER-2013-081902

PATIENT
  Age: 26 Year
  Sex: Female
  Weight: 68 kg

DRUGS (3)
  1. MIRENA [Suspect]
     Indication: CONTRACEPTION
     Dosage: 20 MCG/24HR, CONT
     Route: 015
     Dates: start: 20060418, end: 20070321
  2. FIORICET [Concomitant]
     Dosage: UNK
     Dates: start: 20070321
  3. MVI [Concomitant]
     Dosage: UNK
     Dates: start: 20070321

REACTIONS (10)
  - Uterine perforation [None]
  - Pelvic pain [None]
  - Abdominal pain [None]
  - Injury [None]
  - Emotional distress [None]
  - Device dislocation [None]
  - Abdominal pain lower [None]
  - Headache [None]
  - Nausea [None]
  - Anxiety [None]
